FAERS Safety Report 9329402 (Version 2)
Quarter: 2013Q3

REPORT INFORMATION
  Report Type: Spontaneous
  Country: GR (occurrence: GR)
  Receive Date: 20130604
  Receipt Date: 20130729
  Transmission Date: 20140515
  Serious: Yes (Hospitalization, Other)
  Sender: FDA-Public Use
  Company Number: GR-GLAXOSMITHKLINE-B0896596A

PATIENT
  Age: 50 Year
  Sex: Male

DRUGS (1)
  1. REVOLADE [Suspect]
     Indication: IMMUNE THROMBOCYTOPENIC PURPURA
     Route: 065

REACTIONS (5)
  - Myocardial infarction [Recovered/Resolved]
  - Myocardial ischaemia [Recovered/Resolved]
  - Cardiac failure [Recovered/Resolved]
  - Hypocalcaemia [Recovered/Resolved]
  - Ejection fraction [Recovered/Resolved]
